FAERS Safety Report 7451709-7 (Version None)
Quarter: 2011Q2

REPORT INFORMATION
  Report Type: 
  Country: None (occurrence: None)
  Receive Date: 20110502
  Receipt Date: 20100727
  Transmission Date: 20111010
  Serious: No
  Sender: FDA-Public Use
  Company Number: US-ASTRAZENECA-2010SE30813

PATIENT
  Sex: Female

DRUGS (1)
  1. NEXIUM [Suspect]
     Route: 048

REACTIONS (9)
  - MALAISE [None]
  - DISCOMFORT [None]
  - MUSCLE SPASMS [None]
  - DRUG DOSE OMISSION [None]
  - DYSPEPSIA [None]
  - UPPER-AIRWAY COUGH SYNDROME [None]
  - CYSTITIS [None]
  - NAUSEA [None]
  - ABDOMINAL PAIN UPPER [None]
